FAERS Safety Report 6283001-0 (Version None)
Quarter: 2009Q3

REPORT INFORMATION
  Report Type: 
  Country: None (occurrence: None)
  Receive Date: 20090724
  Receipt Date: 20090716
  Transmission Date: 20100115
  Serious: Yes (Other)
  Sender: FDA-Public Use
  Company Number: PHEH2009US07165

PATIENT
  Sex: Female
  Weight: 75.737 kg

DRUGS (1)
  1. ENABLEX [Suspect]
     Indication: MICTURITION URGENCY
     Dosage: 7.5 MG, QD
     Route: 048
     Dates: start: 20081004, end: 20081006

REACTIONS (3)
  - BRADYCARDIA [None]
  - HEART RATE DECREASED [None]
  - HYPOTENSION [None]
